FAERS Safety Report 20442904 (Version 1)
Quarter: 2022Q1

REPORT INFORMATION
  Report Type: Spontaneous
  Country: US (occurrence: US)
  Receive Date: 20220208
  Receipt Date: 20220208
  Transmission Date: 20220423
  Serious: Yes (Hospitalization, Other)
  Sender: FDA-Public Use
  Company Number: None

PATIENT
  Sex: Female

DRUGS (34)
  1. FLUOXETINE [Suspect]
     Active Substance: FLUOXETINE HYDROCHLORIDE
     Indication: Schizophrenia
     Dosage: 10 MILLIGRAM, PER DAY
     Route: 048
  2. HALOPERIDOL [Suspect]
     Active Substance: HALOPERIDOL
     Indication: Schizophrenia
     Dosage: 1 MILLIGRAM, PER DAY
     Route: 048
  3. HALOPERIDOL [Suspect]
     Active Substance: HALOPERIDOL
     Dosage: 5 MILLIGRAM, PER DAY
     Route: 048
  4. HALOPERIDOL [Suspect]
     Active Substance: HALOPERIDOL
     Dosage: 10 MILLIGRAM, PER DAY (GRADUALLY INCREASED TO 10MG TWICE)
     Route: 048
  5. HALOPERIDOL [Suspect]
     Active Substance: HALOPERIDOL
     Dosage: UNK, GRADUALLY TAPERED
     Route: 065
  6. OLANZAPINE [Suspect]
     Active Substance: OLANZAPINE
     Indication: Schizophrenia
     Dosage: 2.5 MILLIGRAM, AT BED TIME, PER DAY
     Route: 048
  7. OLANZAPINE [Suspect]
     Active Substance: OLANZAPINE
     Indication: Psychotic disorder
     Dosage: 5 MILLIGRAM, PER DAY (DOSE INCREASED)
     Route: 048
  8. OLANZAPINE [Suspect]
     Active Substance: OLANZAPINE
     Dosage: 2.5 MILLIGRAM, PER DAY (DOSE REDUCED)
     Route: 065
  9. QUETIAPINE [Suspect]
     Active Substance: QUETIAPINE
     Indication: Schizophrenia
     Dosage: 100 MILLIGRAM, AT BED TIME, PER DAY
     Route: 048
  10. LORAZEPAM [Suspect]
     Active Substance: LORAZEPAM
     Indication: Schizophrenia
     Dosage: 1 MILLIGRAM, PER DAY
     Route: 048
  11. AMILORIDE [Suspect]
     Active Substance: AMILORIDE
     Indication: Schizophrenia
     Dosage: UNK
     Route: 065
  12. AMILORIDE [Suspect]
     Active Substance: AMILORIDE
     Dosage: 100 MICROGRAM
     Route: 065
  13. LITHIUM [Suspect]
     Active Substance: LITHIUM
     Indication: Schizophrenia
     Dosage: 450 MILLIGRAM, PER DAY
     Route: 048
  14. LITHIUM [Suspect]
     Active Substance: LITHIUM
     Dosage: 900 MILLIGRAM, PER DAY (DOSE INCREASED)
     Route: 048
  15. VALPROIC ACID [Suspect]
     Active Substance: VALPROIC ACID
     Indication: Schizophrenia
     Dosage: 250 MILLIGRAM, PER DAY
     Route: 048
  16. ARIPIPRAZOLE [Suspect]
     Active Substance: ARIPIPRAZOLE
     Indication: Schizophrenia
     Dosage: 5 MILLIGRAM, PER DAY
     Route: 048
  17. ARIPIPRAZOLE [Suspect]
     Active Substance: ARIPIPRAZOLE
     Dosage: 15 MILLIGRAM, PER DAY (GRADUALLY TITRATED TO 15MG)
     Route: 048
  18. RISPERIDONE [Suspect]
     Active Substance: RISPERIDONE
     Indication: Schizophrenia
     Dosage: 2 MILLIGRAM, PER DAY
     Route: 048
  19. RISPERIDONE [Suspect]
     Active Substance: RISPERIDONE
     Dosage: 2 MILLIGRAM, BID (EVERY 12 HOURS)
     Route: 048
  20. RISPERIDONE [Suspect]
     Active Substance: RISPERIDONE
     Dosage: 75 MILLIGRAM, PER DAY (TITRATED TO 75MG/DAY)
     Route: 048
  21. RISPERIDONE [Suspect]
     Active Substance: RISPERIDONE
     Dosage: 0.5 MILLIGRAM, UNK
     Route: 048
  22. RISPERIDONE [Suspect]
     Active Substance: RISPERIDONE
     Dosage: 3 MILLIGRAM, BID
     Route: 048
  23. ATOMOXETINE [Concomitant]
     Active Substance: ATOMOXETINE
     Indication: Disturbance in attention
     Dosage: 10 MILLIGRAM, PER DAY
     Route: 048
  24. CLOZAPINE [Concomitant]
     Active Substance: CLOZAPINE
     Indication: Schizophrenia
     Dosage: 12.5 MILLIGRAM, AT BED TIME
     Route: 048
  25. CLOZAPINE [Concomitant]
     Active Substance: CLOZAPINE
     Dosage: 300 MILLIGRAM, AT BED TIME (DAILY TOTAL) (GRADUALLY INCREASED)
     Route: 048
  26. ACETYLCYSTEINE [Concomitant]
     Active Substance: ACETYLCYSTEINE
     Indication: Schizophrenia
     Dosage: 600 MILLIGRAM, PER DAY
     Route: 048
  27. ACETYLCYSTEINE [Concomitant]
     Active Substance: ACETYLCYSTEINE
     Dosage: 600 MILLIGRAM, TID (GRADUALLY TITRATED)
     Route: 048
  28. SERTRALINE [Concomitant]
     Active Substance: SERTRALINE HYDROCHLORIDE
     Indication: Schizophrenia
     Dosage: 2 MILLIGRAM, BID
     Route: 048
  29. SERTRALINE [Concomitant]
     Active Substance: SERTRALINE HYDROCHLORIDE
     Dosage: 75 MILLIGRAM, PER DAY (TITRATED FROM 2MG TWICE DAILY TO)
     Route: 048
  30. SERTRALINE [Concomitant]
     Active Substance: SERTRALINE HYDROCHLORIDE
     Dosage: 50 MILLIGRAM, BID
     Route: 048
  31. BENZTROPINE [Concomitant]
     Active Substance: BENZTROPINE
     Indication: Prophylaxis
     Dosage: 1 MILLIGRAM, PER DAY
     Route: 048
  32. BENZTROPINE [Concomitant]
     Active Substance: BENZTROPINE
     Dosage: UNK, GRADUALLY TAPERED
     Route: 065
  33. BENZTROPINE [Concomitant]
     Active Substance: BENZTROPINE
     Dosage: 0.5 MILLIGRAM, QD (QSH)
     Route: 065
  34. METFORMIN [Concomitant]
     Active Substance: METFORMIN HYDROCHLORIDE
     Indication: Product used for unknown indication
     Dosage: 500 MILLIGRAM, PER DAY
     Route: 065

REACTIONS (10)
  - Energy increased [Recovered/Resolved]
  - Grandiosity [Recovered/Resolved]
  - Hypersexuality [Recovered/Resolved]
  - Abnormal behaviour [Recovered/Resolved]
  - Impulsive behaviour [Recovered/Resolved]
  - Menstruation irregular [Recovered/Resolved]
  - Heavy menstrual bleeding [Recovered/Resolved]
  - Withdrawal syndrome [Recovered/Resolved]
  - Drug ineffective [Unknown]
  - Off label use [Unknown]
